FAERS Safety Report 24078955 (Version 1)
Quarter: 2024Q3

REPORT INFORMATION
  Report Type: Spontaneous
  Country: BY (occurrence: BY)
  Receive Date: 20240711
  Receipt Date: 20240711
  Transmission Date: 20241017
  Serious: Yes (Death, Life-Threatening, Other)
  Sender: JOHNSON AND JOHNSON
  Company Number: BY-JNJFOC-20240717281

PATIENT
  Age: 71 Year
  Sex: Male
  Weight: 44.7 kg

DRUGS (12)
  1. SIRTURO [Suspect]
     Active Substance: BEDAQUILINE FUMARATE
     Indication: Tuberculosis
     Route: 048
     Dates: start: 20230428, end: 20231013
  2. SIRTURO [Suspect]
     Active Substance: BEDAQUILINE FUMARATE
     Route: 048
     Dates: start: 20230428, end: 20231013
  3. PRETOMANID [Suspect]
     Active Substance: PRETOMANID
     Indication: Tuberculosis
     Route: 048
     Dates: start: 20230428, end: 20231013
  4. LINEZOLID [Suspect]
     Active Substance: LINEZOLID
     Indication: Tuberculosis
     Route: 048
     Dates: start: 20230428, end: 20230818
  5. LINEZOLID [Suspect]
     Active Substance: LINEZOLID
     Route: 048
     Dates: start: 20230419, end: 20230813
  6. CLOFAZIMINE [Suspect]
     Active Substance: CLOFAZIMINE
     Indication: Tuberculosis
     Route: 048
     Dates: start: 20230428, end: 20231013
  7. BISOPROLOL [Concomitant]
     Active Substance: BISOPROLOL\BISOPROLOL FUMARATE
     Indication: Myocardial ischaemia
     Dosage: 2.5 MG X 1R/DAY
     Dates: start: 20230316, end: 20231026
  8. RAMIPRIL [Concomitant]
     Active Substance: RAMIPRIL
     Indication: Myocardial ischaemia
     Dosage: 5 MG IN THE MORNING
     Dates: start: 20230316, end: 20231026
  9. ATORVASTATIN [Concomitant]
     Active Substance: ATORVASTATIN
     Indication: Myocardial ischaemia
     Dosage: 20 MG AT NIGHT
     Dates: start: 20230316, end: 20231030
  10. HYDROCHLOROTHIAZIDE [Concomitant]
     Active Substance: HYDROCHLOROTHIAZIDE
     Indication: Myocardial ischaemia
     Dosage: 25 MG IN THE MORNING
     Dates: start: 20230316, end: 20231030
  11. SPIRONOLACTONE [Concomitant]
     Active Substance: SPIRONOLACTONE
     Indication: Myocardial ischaemia
     Dosage: 50 MG AT 12.00
     Dates: start: 20230316, end: 20231030
  12. IPRATEROL AERONATIV [Concomitant]
     Indication: Chronic obstructive pulmonary disease
     Dosage: 2 BREATHS X 2 TIMES PER DAY
     Dates: start: 20230523, end: 20231030

REACTIONS (3)
  - Malignant mediastinal neoplasm [Fatal]
  - Anaemia [Recovering/Resolving]
  - Metastatic bronchial carcinoma [Unknown]

NARRATIVE: CASE EVENT DATE: 20230928
